FAERS Safety Report 9493170 (Version 1)
Quarter: 2013Q3

REPORT INFORMATION
  Report Type: Spontaneous
  Country: FR (occurrence: FR)
  Receive Date: 20130902
  Receipt Date: 20130902
  Transmission Date: 20140515
  Serious: Yes (Hospitalization)
  Sender: FDA-Public Use
  Company Number: FR-ROCHE-1267737

PATIENT
  Age: 56 Year
  Sex: Female

DRUGS (6)
  1. AVASTIN [Suspect]
     Indication: COLON CANCER
     Dosage: 25 MG/ML
     Route: 041
     Dates: start: 201305
  2. EFFENTORA [Suspect]
     Indication: COLON CANCER
     Route: 048
     Dates: start: 20130614
  3. CAMPTO [Suspect]
     Indication: COLON CANCER
     Route: 041
     Dates: start: 201305
  4. FLUOROURACILE [Suspect]
     Indication: COLON CANCER
     Route: 041
     Dates: start: 201202
  5. PARACETAMOL [Suspect]
     Indication: COLON CANCER
     Route: 048
     Dates: start: 2011, end: 20130716
  6. PARIET [Suspect]
     Indication: COLON CANCER
     Dosage: 20 MG, ENTERIC-COATED TABLET
     Route: 048
     Dates: start: 2011, end: 20130716

REACTIONS (4)
  - Gamma-glutamyltransferase increased [Recovered/Resolved]
  - Transaminases increased [Recovered/Resolved]
  - Blood alkaline phosphatase increased [Recovered/Resolved]
  - Hepatic pain [Recovered/Resolved]
